FAERS Safety Report 12991469 (Version 1)
Quarter: 2016Q4

REPORT INFORMATION
  Report Type: Spontaneous
  Country: US (occurrence: US)
  Receive Date: 20161201
  Receipt Date: 20161201
  Transmission Date: 20170207
  Serious: No
  Sender: FDA-Public Use
  Company Number: US-ENDO PHARMACEUTICALS INC.-2016-000959

PATIENT
  Age: 66 Year
  Sex: Female
  Weight: 55.84 kg

DRUGS (2)
  1. ALPRAZOLAM TABLETS 0.5 MG [Suspect]
     Active Substance: ALPRAZOLAM
     Indication: SLEEP DISORDER
  2. ALPRAZOLAM TABLETS 0.5 MG [Suspect]
     Active Substance: ALPRAZOLAM
     Indication: ANXIETY
     Dosage: ONE-TWO 0.5MG TABLET AT NIGHT
     Route: 048
     Dates: start: 20160119

REACTIONS (8)
  - Tension headache [Unknown]
  - Feeling jittery [Unknown]
  - Abdominal discomfort [Unknown]
  - Anxiety [Unknown]
  - Product quality issue [Unknown]
  - Drug ineffective [Not Recovered/Not Resolved]
  - Insomnia [Unknown]
  - Migraine [Unknown]

NARRATIVE: CASE EVENT DATE: 2016
